FAERS Safety Report 21866856 (Version 3)
Quarter: 2023Q1

REPORT INFORMATION
  Report Type: Spontaneous
  Country: CA (occurrence: CA)
  Receive Date: 20230116
  Receipt Date: 20230228
  Transmission Date: 20230418
  Serious: Yes (Hospitalization, Other)
  Sender: FDA-Public Use
  Company Number: CA-PFIZER INC-202300014773

PATIENT
  Age: 70 Year
  Sex: Male

DRUGS (2)
  1. METHOTREXATE SODIUM [Suspect]
     Active Substance: METHOTREXATE SODIUM
     Indication: Rheumatoid arthritis
     Dosage: 1 DF
     Dates: start: 2018
  2. PREDNISONE [Concomitant]
     Active Substance: PREDNISONE
     Dosage: UNK, PREDNISONE TO BE REDUCED

REACTIONS (4)
  - Skin infection [Not Recovered/Not Resolved]
  - Necrosis [Unknown]
  - Vasculitis [Not Recovered/Not Resolved]
  - Localised infection [Not Recovered/Not Resolved]

NARRATIVE: CASE EVENT DATE: 20230201
